FAERS Safety Report 12679344 (Version 1)
Quarter: 2016Q3

REPORT INFORMATION
  Report Type: Spontaneous
  Country: US (occurrence: US)
  Receive Date: 20160824
  Receipt Date: 20160824
  Transmission Date: 20161109
  Serious: No
  Sender: FDA-Public Use
  Company Number: US-SUN PHARMACEUTICAL INDUSTRIES LTD-2015US-110608

PATIENT
  Sex: Female

DRUGS (4)
  1. BACTRIM [Suspect]
     Active Substance: SULFAMETHOXAZOLE\TRIMETHOPRIM
     Indication: LOCALISED INFECTION
     Dosage: UNK
     Route: 065
     Dates: start: 20151115
  2. ORENITRAM [Interacting]
     Active Substance: TREPROSTINIL
     Indication: PULMONARY HYPERTENSION
     Dosage: 0.375 MG, TID
     Route: 048
     Dates: start: 201505
  3. LEVAQUIN [Concomitant]
     Active Substance: LEVOFLOXACIN
     Indication: LOCALISED INFECTION
     Dosage: UNK
     Route: 065
     Dates: start: 20151115
  4. OXYCODONE [Concomitant]
     Active Substance: OXYCODONE
     Indication: LOCALISED INFECTION
     Dosage: UNK
     Route: 065
     Dates: start: 20151115

REACTIONS (5)
  - Drug dose omission [Unknown]
  - Drug level increased [Unknown]
  - Hypotension [Unknown]
  - Dizziness [Unknown]
  - Drug interaction [Unknown]

NARRATIVE: CASE EVENT DATE: 2015
